FAERS Safety Report 10355696 (Version 1)
Quarter: 2014Q3

REPORT INFORMATION
  Report Type: Report from Study
  Country: US (occurrence: US)
  Receive Date: 20140731
  Receipt Date: 20140731
  Transmission Date: 20150326
  Serious: Yes (Other)
  Sender: FDA-Public Use
  Company Number: US-GILEAD-2014-0110108

PATIENT
  Age: 51 Year
  Sex: Female
  Weight: 41.72 kg

DRUGS (9)
  1. VITAMIN D3 [Concomitant]
     Active Substance: CHOLECALCIFEROL
     Dosage: TAKE 2000 BY MOUTH DAILY START AFTER COMPLETNG 8 WEEKS OF 50,000 U/WEEK
     Route: 048
  2. SOFOSBUVIR [Suspect]
     Active Substance: SOFOSBUVIR
     Indication: HEPATITIS C
     Dosage: 400 MG, QD
     Route: 048
     Dates: start: 20140508
  3. CLONAZEPAM. [Concomitant]
     Active Substance: CLONAZEPAM
     Dosage: 3 IN 1 DAY
     Route: 048
  4. TIZANIDINE [Concomitant]
     Active Substance: TIZANIDINE
     Indication: PAIN
     Dosage: 4 MG, IN 1 AS NECESSARY
     Route: 048
  5. VITAMIN D2 [Concomitant]
     Active Substance: ERGOCALCIFEROL
     Dosage: 1 IN 1 WEEK
  6. RIBAVIRIN. [Suspect]
     Active Substance: RIBAVIRIN
     Indication: HEPATITIS C
     Dosage: 400MG IN MORNING AND 600MG IN EVENING
     Route: 065
     Dates: start: 20140508
  7. FISH OIL [Concomitant]
     Active Substance: FISH OIL
     Dosage: 1 DOSE(S), 1 IN 1 DAY
  8. OLYSIO [Suspect]
     Active Substance: SIMEPREVIR
     Indication: HEPATITIS C
     Dosage: 150 MG, QD
     Route: 048
     Dates: start: 20140508
  9. BENADRYL [Concomitant]
     Active Substance: DIPHENHYDRAMINE HYDROCHLORIDE
     Indication: SEASONAL ALLERGY
     Dosage: 2 DOSES(S), 3 IN 1 DAY

REACTIONS (7)
  - Off label use [Not Recovered/Not Resolved]
  - Fatigue [Unknown]
  - Liver injury [Not Recovered/Not Resolved]
  - Headache [Recovered/Resolved]
  - Weight increased [Not Recovered/Not Resolved]
  - Rash macular [Not Recovered/Not Resolved]
  - Rheumatoid arthritis [Unknown]

NARRATIVE: CASE EVENT DATE: 2014
